FAERS Safety Report 18595819 (Version 8)
Quarter: 2024Q2

REPORT INFORMATION
  Report Type: Report from Study
  Country: US (occurrence: US)
  Receive Date: 20201209
  Receipt Date: 20240406
  Transmission Date: 20240716
  Serious: Yes (Hospitalization, Other)
  Sender: FDA-Public Use
  Company Number: US-SHIRE-US202001363AA

PATIENT
  Age: 45 Year
  Sex: Female

DRUGS (2)
  1. HUMAN IMMUNOGLOBULIN G [Suspect]
     Active Substance: HUMAN IMMUNOGLOBULIN G
     Indication: Primary immunodeficiency syndrome
     Dosage: 10 GRAM, 1/WEEK
     Route: 065
  2. HUMAN IMMUNOGLOBULIN G [Suspect]
     Active Substance: HUMAN IMMUNOGLOBULIN G
     Indication: Immunodeficiency common variable

REACTIONS (15)
  - Bell^s palsy [Unknown]
  - Bladder disorder [Unknown]
  - Deafness unilateral [Unknown]
  - Nausea [Unknown]
  - COVID-19 pneumonia [Unknown]
  - Pneumonia parainfluenzae viral [Unknown]
  - Basal cell carcinoma [Unknown]
  - Renal failure [Unknown]
  - Multimorbidity [Unknown]
  - Weight increased [Unknown]
  - General physical health deterioration [Unknown]
  - Vocal cord disorder [Unknown]
  - Blood pressure decreased [Unknown]
  - Breast mass [Unknown]
  - Device power source issue [Unknown]

NARRATIVE: CASE EVENT DATE: 20201130
